FAERS Safety Report 5323952-4 (Version None)
Quarter: 2007Q2

REPORT INFORMATION
  Report Type: 
  Country: None (occurrence: None)
  Receive Date: 20070514
  Receipt Date: 20070504
  Transmission Date: 20071010
  Serious: Yes (Other)
  Sender: FDA-Public Use
  Company Number: US-ASTRAZENECA-2007UW09516

PATIENT
  Age: 69 Year
  Sex: Female
  Weight: 110.7 kg

DRUGS (3)
  1. ARIMIDEX [Suspect]
     Indication: BREAST CANCER FEMALE
     Route: 048
  2. LISINOPRIL [Concomitant]
     Route: 048
  3. LOVASTATIN [Concomitant]

REACTIONS (4)
  - PROTHROMBIN TIME SHORTENED [None]
  - RASH MACULAR [None]
  - SKIN HAEMORRHAGE [None]
  - WEIGHT INCREASED [None]
